FAERS Safety Report 4406573-7 (Version None)
Quarter: 2004Q3

REPORT INFORMATION
  Report Type: 
  Country: None (occurrence: None)
  Receive Date: 20040723
  Receipt Date: 20031118
  Transmission Date: 20050211
  Serious: Yes (Disabling)
  Sender: FDA-Public Use
  Company Number: JP-GLAXOSMITHKLINE-B0315661A

PATIENT
  Age: 76 Year
  Sex: Male
  Weight: 50 kg

DRUGS (7)
  1. VALTREX [Suspect]
     Indication: HERPES ZOSTER
     Dosage: 1000MG THREE TIMES PER DAY
     Route: 048
     Dates: start: 20031112, end: 20031116
  2. LOXOPROFEN SODIUM [Suspect]
     Indication: NEURALGIA
     Route: 048
     Dates: start: 20031112, end: 20031116
  3. REBAMIPIDE [Concomitant]
     Indication: HERPES ZOSTER
     Route: 048
     Dates: start: 20021101, end: 20031116
  4. MECOBALAMIN [Concomitant]
     Indication: LUMBAR SPINAL STENOSIS
     Route: 048
     Dates: start: 20021101, end: 20031116
  5. BERAPROST [Concomitant]
     Indication: LUMBAR SPINAL STENOSIS
     Route: 048
     Dates: start: 20021101, end: 20031116
  6. MAGNESIUM OXIDE [Concomitant]
     Indication: CONSTIPATION
     Dosage: 2G PER DAY
     Route: 048
     Dates: start: 20030502
  7. VIDARABINE [Concomitant]
     Indication: HERPES ZOSTER
     Dosage: 10G PER DAY
     Route: 061
     Dates: start: 20031112, end: 20031116

REACTIONS (17)
  - BACTERIA URINE IDENTIFIED [None]
  - BLOOD CREATININE INCREASED [None]
  - BLOOD UREA INCREASED [None]
  - DEPRESSED LEVEL OF CONSCIOUSNESS [None]
  - DIALYSIS [None]
  - ELECTROENCEPHALOGRAM ABNORMAL [None]
  - ENCEPHALOPATHY [None]
  - HALLUCINATION, AUDITORY [None]
  - KLEBSIELLA INFECTION [None]
  - MUSCLE RIGIDITY [None]
  - MYOCLONUS [None]
  - RENAL FAILURE ACUTE [None]
  - RENAL TUBULAR DISORDER [None]
  - SPEECH DISORDER [None]
  - THERAPY NON-RESPONDER [None]
  - TINNITUS [None]
  - WHITE BLOOD CELL COUNT DECREASED [None]
